FAERS Safety Report 16727272 (Version 4)
Quarter: 2021Q2

REPORT INFORMATION
  Report Type: Spontaneous
  Country: CA (occurrence: CA)
  Receive Date: 20190822
  Receipt Date: 20210603
  Transmission Date: 20210716
  Serious: Yes (Life-Threatening, Hospitalization, Other)
  Sender: FDA-Public Use
  Company Number: CA-AUROBINDO-AUR-APL-2019-054120

PATIENT
  Age: 52 Year
  Sex: Male

DRUGS (27)
  1. ZOPICLONE [Interacting]
     Active Substance: ZOPICLONE
     Dosage: 15 MILLIGRAM, ONCE A DAY (1 EVERY 1 DAYS)
     Route: 048
  2. ALTACE [Interacting]
     Active Substance: RAMIPRIL
     Indication: PRODUCT USED FOR UNKNOWN INDICATION
     Dosage: UNK
     Route: 065
  3. CIPRALEX [Interacting]
     Active Substance: ESCITALOPRAM OXALATE
     Dosage: 140 MILLIGRAM, ONCE A DAY
     Route: 048
  4. LORAZEPAM. [Interacting]
     Active Substance: LORAZEPAM
     Indication: INSOMNIA
     Dosage: 30.0 MILLIGRAM
     Route: 048
  5. CIPRALEX [Interacting]
     Active Substance: ESCITALOPRAM OXALATE
     Indication: DEPRESSION
     Dosage: 10 MILLIGRAM, ONCE A DAY
     Route: 065
  6. CIPRALEX [Interacting]
     Active Substance: ESCITALOPRAM OXALATE
     Dosage: 10.0 MILLIGRAM
     Route: 065
  7. DIAZEPAM. [Interacting]
     Active Substance: DIAZEPAM
     Dosage: 10.0 MILLIGRAM
     Route: 065
  8. MORPHINE [Interacting]
     Active Substance: MORPHINE
     Indication: DEPRESSION
     Dosage: 2640.0 MILLIGRAM
     Route: 065
  9. MORPHINE [Interacting]
     Active Substance: MORPHINE
     Dosage: UNK
     Route: 048
  10. OXYCODONE [Interacting]
     Active Substance: OXYCODONE
     Dosage: UNK
     Route: 048
  11. MORPHINE [Interacting]
     Active Substance: MORPHINE
     Dosage: 420.0 MILLIGRAM
     Route: 065
  12. OXYCODONE [Interacting]
     Active Substance: OXYCODONE
     Indication: SPINAL STENOSIS
     Dosage: 10.0 MILLIGRAM
     Route: 065
  13. OXYCODONE [Interacting]
     Active Substance: OXYCODONE
     Dosage: 20.0 MILLIGRAM
     Route: 048
  14. ZOPICLONE [Interacting]
     Active Substance: ZOPICLONE
     Indication: INSOMNIA
     Dosage: 7.5 MILLIGRAM
     Route: 065
  15. CITALOPRAM [Suspect]
     Active Substance: CITALOPRAM HYDROBROMIDE
     Indication: DEPRESSION
     Dosage: UNK
     Route: 048
  16. CITALOPRAM [Interacting]
     Active Substance: CITALOPRAM HYDROBROMIDE
     Indication: PRODUCT USED FOR UNKNOWN INDICATION
  17. MORPHINE [Interacting]
     Active Substance: MORPHINE
     Indication: SPINAL STENOSIS
     Dosage: 30 MILLIGRAM, ONCE A DAY (1 EVERY 1 DAYS)
     Route: 048
  18. MORPHINE [Interacting]
     Active Substance: MORPHINE
     Indication: PRODUCT USED FOR UNKNOWN INDICATION
     Dosage: 100.0 MILLIGRAM
     Route: 065
  19. MORPHINE [Interacting]
     Active Substance: MORPHINE
     Dosage: 9500.0 MILLIGRAM
     Route: 065
  20. MORPHINE [Interacting]
     Active Substance: MORPHINE
     Dosage: 30 MILLIGRAM, ONCE A DAY
     Route: 048
  21. LORAZEPAM. [Interacting]
     Active Substance: LORAZEPAM
     Dosage: 1.0 MILLIGRAM
     Route: 048
  22. OXYCODONE AND ACETAMINOPHEN [Interacting]
     Active Substance: ACETAMINOPHEN\OXYCODONE HYDROCHLORIDE
     Indication: PRODUCT USED FOR UNKNOWN INDICATION
     Dosage: UNK
     Route: 048
  23. DIAZEPAM. [Interacting]
     Active Substance: DIAZEPAM
     Indication: SPINAL STENOSIS
     Dosage: UNK
     Route: 048
  24. DIAZEPAM. [Interacting]
     Active Substance: DIAZEPAM
     Dosage: 1800.0 MILLIGRAM
     Route: 048
  25. MORPHINE [Interacting]
     Active Substance: MORPHINE
     Dosage: 15.0 MILLIGRAM
     Route: 065
  26. ZOPICLONE [Interacting]
     Active Substance: ZOPICLONE
     Dosage: 187.5 MILLIGRAM
     Route: 048
  27. OXYCODONE [Interacting]
     Active Substance: OXYCODONE
     Dosage: UNK
     Route: 065

REACTIONS (22)
  - Blood creatine phosphokinase increased [Recovered/Resolved]
  - Drug screen positive [Recovering/Resolving]
  - Electrocardiogram abnormal [Recovered/Resolved]
  - Hyperkalaemia [Recovered/Resolved]
  - Sinus tachycardia [Recovered/Resolved]
  - Oxygen saturation decreased [Recovered/Resolved]
  - Overdose [Recovered/Resolved]
  - Blood creatine increased [Recovered/Resolved]
  - Bradycardia [Recovered/Resolved]
  - Hypotension [Recovered/Resolved]
  - Blood potassium increased [Recovered/Resolved]
  - Intentional overdose [Recovered/Resolved]
  - Loss of consciousness [Recovered/Resolved]
  - Blood pressure decreased [Recovered/Resolved]
  - Coma [Recovered/Resolved]
  - Opiates positive [Recovered/Resolved]
  - Suicide attempt [Recovered/Resolved]
  - Electrocardiogram QT prolonged [Recovered/Resolved]
  - Mechanical ventilation [Recovered/Resolved]
  - Coma scale abnormal [Recovered/Resolved]
  - Drug interaction [Recovered/Resolved]
  - Heart rate decreased [Recovered/Resolved]
